FAERS Safety Report 8585953-2 (Version None)
Quarter: 2012Q3

REPORT INFORMATION
  Report Type: 
  Country: None (occurrence: None)
  Receive Date: 20120810
  Receipt Date: 20120803
  Transmission Date: 20120928
  Serious: Yes (Hospitalization)
  Sender: FDA-Public Use
  Company Number: US-B.I. PHARMACEUTICALS,INC./RIDGEFIELD-2012-BP-17550BP

PATIENT
  Sex: Male

DRUGS (5)
  1. USPECIFIED INHALERS [Concomitant]
  2. PREDNISONE TAB [Concomitant]
  3. DILTIAZEM [Concomitant]
  4. PRADAXA [Suspect]
  5. LISINOPRIL [Concomitant]

REACTIONS (2)
  - HAEMORRHAGE [None]
  - HAEMOGLOBIN DECREASED [None]
